FAERS Safety Report 7613401-5 (Version None)
Quarter: 2011Q3

REPORT INFORMATION
  Report Type: 
  Country: None (occurrence: None)
  Receive Date: 20110708
  Receipt Date: 20110624
  Transmission Date: 20111222
  Serious: Yes (Other)
  Sender: FDA-Public Use
  Company Number: TPA2011A03451

PATIENT
  Age: 64 Year
  Sex: Male

DRUGS (2)
  1. UNKNOWN DIABETES MEDICATION (DRUG USED IN DIABETES) [Concomitant]
  2. ACTOS [Suspect]
     Indication: DIABETES MELLITUS
     Dosage: 15 MG, 1 IN 1 D, PER ORAL
     Route: 048
     Dates: start: 20040101, end: 20110624

REACTIONS (1)
  - BLADDER CANCER [None]
